FAERS Safety Report 19032730 (Version 1)
Quarter: 2021Q1

REPORT INFORMATION
  Report Type: Spontaneous
  Country: FR (occurrence: FR)
  Receive Date: 20210319
  Receipt Date: 20210319
  Transmission Date: 20210420
  Serious: Yes (Death, Other)
  Sender: FDA-Public Use
  Company Number: FR-PFIZER INC-2021283055

PATIENT
  Age: 77 Year
  Sex: Female
  Weight: 89 kg

DRUGS (12)
  1. L?THYROXINE [LEVOTHYROXINE] [Concomitant]
     Active Substance: LEVOTHYROXINE
     Dosage: 15 DROPS IN THE MORNING
  2. SOTALOL. [Concomitant]
     Active Substance: SOTALOL
     Dosage: 40 MG IN THE MORNING AND 40 MG IN THE EVENING
  3. CANDESARTAN. [Concomitant]
     Active Substance: CANDESARTAN
     Dosage: 12 MG IN THE MORNING
  4. ATORVASTATIN [Concomitant]
     Active Substance: ATORVASTATIN
     Dosage: UNK
  5. DUPHALAC [Concomitant]
     Active Substance: LACTULOSE
     Dosage: IF NECESSARY
  6. ALPRAZOLAM. [Concomitant]
     Active Substance: ALPRAZOLAM
     Dosage: UNK
     Dates: end: 20201210
  7. COMIRNATY [Suspect]
     Active Substance: TOZINAMERAN
     Indication: COVID-19 IMMUNISATION
     Dosage: 0.3 ML, SINGLE
     Route: 030
     Dates: start: 20210114, end: 20210114
  8. VENLAFAXINE HCL [Suspect]
     Active Substance: VENLAFAXINE HYDROCHLORIDE
     Indication: DEPRESSION
     Dosage: 37.5 MG, DAILY
     Route: 048
     Dates: start: 20201211, end: 20210216
  9. ATORVASTATIN [Concomitant]
     Active Substance: ATORVASTATIN
     Dosage: 10 MG / DAY
     Dates: start: 20201210
  10. DOLIPRANE [Concomitant]
     Active Substance: ACETAMINOPHEN
     Dosage: UNK, AS NEEDED
  11. ZOPICLONE [Concomitant]
     Active Substance: ZOPICLONE
     Dosage: 3.75 MG AT BEDTIME
  12. NORMACOL [CALENDULA OFFICINALIS;RHAMNUS FRANGULA] [Concomitant]
     Dosage: IF NEEDED

REACTIONS (1)
  - Pemphigoid [Fatal]

NARRATIVE: CASE EVENT DATE: 20210208
